FAERS Safety Report 21344494 (Version 1)
Quarter: 2022Q3

REPORT INFORMATION
  Report Type: 
  Country: None (occurrence: None)
  Receive Date: 20220916
  Receipt Date: 20220916
  Transmission Date: 20221027
  Serious: Yes (Other)
  Sender: FDA-Public Use
  Company Number: None

PATIENT
  Age: 18 Year
  Sex: Female

DRUGS (1)
  1. MYORISAN [Suspect]
     Active Substance: ISOTRETINOIN

REACTIONS (4)
  - Psychiatric symptom [None]
  - Depressed mood [None]
  - Crying [None]
  - Off label use [Recovered/Resolved]

NARRATIVE: CASE EVENT DATE: 20220826
